FAERS Safety Report 15408520 (Version 2)
Quarter: 2018Q3

REPORT INFORMATION
  Report Type: Spontaneous
  Country: IE (occurrence: IE)
  Receive Date: 20180920
  Receipt Date: 20180926
  Transmission Date: 20181010
  Serious: Yes (Hospitalization)
  Sender: FDA-Public Use
  Company Number: IE-FRESENIUS KABI-FK201809827

PATIENT
  Sex: Female

DRUGS (1)
  1. SODIUM CHLORIDE 0.9% (MANUFACTURER UNKNOWN) [Suspect]
     Active Substance: SODIUM CHLORIDE
     Indication: PRODUCT USED FOR UNKNOWN INDICATION
     Dosage: UNKNOWN
     Route: 065

REACTIONS (4)
  - Abdominal pain [Unknown]
  - Post-traumatic neck syndrome [Unknown]
  - Back pain [Recovered/Resolved]
  - Dyspepsia [Unknown]
